FAERS Safety Report 9052242 (Version 1)
Quarter: 2013Q1

REPORT INFORMATION
  Report Type: Spontaneous
  Country: US (occurrence: US)
  Receive Date: 20130206
  Receipt Date: 20130206
  Transmission Date: 20140127
  Serious: Yes (Hospitalization)
  Sender: FDA-Public Use
  Company Number: PHEH2013US002850

PATIENT
  Sex: Male

DRUGS (1)
  1. GLEEVEC [Suspect]
     Indication: CERVIX CARCINOMA
     Dosage: 100 MG, 6 DAILY
     Route: 048

REACTIONS (3)
  - Sneezing [Unknown]
  - Epistaxis [Unknown]
  - Pyrexia [Unknown]
